FAERS Safety Report 16398223 (Version 1)
Quarter: 2019Q3

REPORT INFORMATION
  Report Type: Spontaneous
  Country: US (occurrence: US)
  Receive Date: 20190605
  Receipt Date: 20190605
  Transmission Date: 20191004
  Serious: Yes (Other)
  Sender: FDA-Public Use
  Company Number: None

PATIENT
  Age: 62 Year
  Sex: Male
  Weight: 71.1 kg

DRUGS (9)
  1. CLONIDINE. [Concomitant]
     Active Substance: CLONIDINE
  2. RITUXAN HYCELA [Concomitant]
     Active Substance: HYALURONIDASE (HUMAN RECOMBINANT)\RITUXIMAB
  3. DORZOLAMIDE HCL [Concomitant]
     Active Substance: DORZOLAMIDE HYDROCHLORIDE
  4. JYNARQUE [Suspect]
     Active Substance: TOLVAPTAN
     Indication: CONGENITAL CYSTIC KIDNEY DISEASE
     Dosage: ?          QUANTITY:2 TABLET(S);OTHER FREQUENCY:1 AM / 1 AFTERNOON;?
     Route: 048
     Dates: start: 20180901, end: 20190503
  5. TRAVATAN [Concomitant]
     Active Substance: TRAVOPROST
  6. LOSARTAN. [Concomitant]
     Active Substance: LOSARTAN
  7. COMBIGAN [Concomitant]
     Active Substance: BRIMONIDINE TARTRATE\TIMOLOL MALEATE
  8. DAPSONE. [Concomitant]
     Active Substance: DAPSONE
  9. PEPCID [Concomitant]
     Active Substance: FAMOTIDINE

REACTIONS (4)
  - Open angle glaucoma [None]
  - Blood glucose increased [None]
  - Optic nerve injury [None]
  - Vision blurred [None]

NARRATIVE: CASE EVENT DATE: 20190325
